FAERS Safety Report 5031763-2 (Version None)
Quarter: 2006Q2

REPORT INFORMATION
  Report Type: 
  Country: None (occurrence: None)
  Receive Date: 20060616
  Receipt Date: 20060607
  Transmission Date: 20061013
  Serious: Yes (Death)
  Sender: FDA-Public Use
  Company Number: GBR-2006-0002298

PATIENT
  Sex: Male

DRUGS (11)
  1. BUPRENORPHINE HCL [Suspect]
     Dosage: SEE IMAGE, TRANSDERMAL
     Route: 062
  2. MORPHINE SULFATE [Suspect]
  3. CODEINE (CODEINE) [Suspect]
  4. FLUVOXAMINE MALEATE [Concomitant]
  5. ZESTRIL [Concomitant]
  6. CONCOR PLUS (HYDROCHLOROTHIAZIDE, BISOPROLOL FUMARATE) [Concomitant]
  7. XENICAL [Concomitant]
  8. IMOVANE (ZOPICLONE) [Concomitant]
  9. LIDOCAINE [Concomitant]
  10. LYRICA [Concomitant]
  11. BUPRENORPHINE HCL [Concomitant]

REACTIONS (7)
  - BLADDER DISORDER [None]
  - BRAIN OEDEMA [None]
  - CONSTIPATION [None]
  - INTENTIONAL OVERDOSE [None]
  - PNEUMONIA ASPIRATION [None]
  - PULMONARY OEDEMA [None]
  - RESPIRATORY PARALYSIS [None]
